FAERS Safety Report 20791695 (Version 2)
Quarter: 2022Q2

REPORT INFORMATION
  Report Type: Spontaneous
  Country: US (occurrence: US)
  Receive Date: 20220505
  Receipt Date: 20220519
  Transmission Date: 20220720
  Serious: Yes (Life-Threatening, Hospitalization)
  Sender: FDA-Public Use
  Company Number: US-TEVA-2022-US-2033195

PATIENT
  Age: 13 Year
  Sex: Male

DRUGS (9)
  1. SULFAMETHOXAZOLE\TRIMETHOPRIM [Suspect]
     Active Substance: SULFAMETHOXAZOLE\TRIMETHOPRIM
     Indication: Antifungal prophylaxis
     Route: 065
  2. HYDROCORTISONE [Suspect]
     Active Substance: HYDROCORTISONE
     Indication: Immune-mediated cytopenia
     Route: 065
  3. BORTEZOMIB [Suspect]
     Active Substance: BORTEZOMIB
     Indication: Immune-mediated cytopenia
     Route: 065
  4. RITUXIMAB [Suspect]
     Active Substance: RITUXIMAB
     Indication: Epstein-Barr viraemia
     Route: 065
  5. HUMAN IMMUNOGLOBULIN G [Concomitant]
     Active Substance: HUMAN IMMUNOGLOBULIN G
     Indication: Immune-mediated cytopenia
     Route: 042
  6. VALACYCLOVIR [Concomitant]
     Active Substance: VALACYCLOVIR HYDROCHLORIDE
     Indication: Infection prophylaxis
     Route: 065
  7. ITRACONAZOLE [Concomitant]
     Active Substance: ITRACONAZOLE
     Indication: Infection prophylaxis
     Route: 065
  8. PENTAMIDINE [Concomitant]
     Active Substance: PENTAMIDINE
     Indication: Infection prophylaxis
     Route: 042
  9. FLUDARABINE [Concomitant]
     Active Substance: FLUDARABINE PHOSPHATE
     Indication: Immunosuppressant drug therapy
     Route: 065

REACTIONS (12)
  - Cerebral toxoplasmosis [Recovering/Resolving]
  - Somnolence [Recovering/Resolving]
  - Cerebellar microhaemorrhage [Recovering/Resolving]
  - Cerebral microhaemorrhage [Recovering/Resolving]
  - Vasogenic cerebral oedema [Recovered/Resolved]
  - Hydrocephalus [Recovering/Resolving]
  - Transverse sinus stenosis [Recovering/Resolving]
  - Partial seizures [Recovered/Resolved]
  - Cerebral ventricle dilatation [Recovering/Resolving]
  - Fine motor delay [Unknown]
  - Fine motor skill dysfunction [Unknown]
  - Motor dysfunction [Unknown]
